FAERS Safety Report 19406227 (Version 4)
Quarter: 2021Q3

REPORT INFORMATION
  Report Type: Report from Study
  Country: None (occurrence: CO)
  Receive Date: 20210611
  Receipt Date: 20210824
  Transmission Date: 20211014
  Serious: Yes (Other)
  Sender: FDA-Public Use
  Company Number: CO-ABBVIE-21K-036-3945334-00

PATIENT
  Sex: Male
  Weight: 107 kg

DRUGS (6)
  1. METHOTREXATE. [Concomitant]
     Active Substance: METHOTREXATE
     Indication: RHEUMATOID ARTHRITIS
     Route: 048
     Dates: start: 202010
  2. IRBESARTAN. [Concomitant]
     Active Substance: IRBESARTAN
     Indication: HYPERTENSION
     Route: 048
     Dates: start: 2021
  3. LOSARTAN. [Suspect]
     Active Substance: LOSARTAN
     Indication: HYPERTENSION
     Route: 048
     Dates: start: 2010, end: 2021
  4. PREDNISOLONE. [Concomitant]
     Active Substance: PREDNISOLONE
     Indication: RHEUMATOID ARTHRITIS
     Route: 048
     Dates: start: 202010
  5. LEFLUNOMIDE. [Concomitant]
     Active Substance: LEFLUNOMIDE
     Indication: RHEUMATOID ARTHRITIS
     Route: 048
     Dates: start: 202010
  6. HUMIRA [Suspect]
     Active Substance: ADALIMUMAB
     Indication: RHEUMATOID ARTHRITIS
     Route: 058
     Dates: start: 20201026

REACTIONS (17)
  - Musculoskeletal disorder [Not Recovered/Not Resolved]
  - Body temperature increased [Unknown]
  - Limb injury [Not Recovered/Not Resolved]
  - Bone hypertrophy [Not Recovered/Not Resolved]
  - Joint swelling [Unknown]
  - Hypoaesthesia [Unknown]
  - Neck pain [Recovering/Resolving]
  - Intervertebral disc degeneration [Not Recovered/Not Resolved]
  - Arthropathy [Unknown]
  - Pain [Unknown]
  - Intervertebral disc protrusion [Not Recovered/Not Resolved]
  - Osteoarthritis [Unknown]
  - Arthralgia [Unknown]
  - Cyst [Not Recovered/Not Resolved]
  - Dizziness [Recovering/Resolving]
  - Fat tissue increased [Recovering/Resolving]
  - Inflammation [Not Recovered/Not Resolved]

NARRATIVE: CASE EVENT DATE: 2021
